FAERS Safety Report 4979613-4 (Version None)
Quarter: 2006Q2

REPORT INFORMATION
  Report Type: 
  Country: None (occurrence: None)
  Receive Date: 20060418
  Receipt Date: 20060403
  Transmission Date: 20061013
  Serious: Yes (Hospitalization)
  Sender: FDA-Public Use
  Company Number: IT200604000351

PATIENT
  Age: 72 Year
  Sex: Male

DRUGS (3)
  1. ZYPREXA [Suspect]
     Indication: BIPOLAR DISORDER
     Dosage: 5 MG, DAILY (1/D), ORAL
     Route: 048
     Dates: start: 20060313, end: 20060301
  2. CYMBALTA [Suspect]
     Indication: BIPOLAR DISORDER
     Dosage: 30 MG, DAILY (1/D), ORAL
     Route: 048
     Dates: start: 20060313, end: 20060301
  3. NORVASC [Concomitant]

REACTIONS (1)
  - BENIGN PROSTATIC HYPERPLASIA [None]
